FAERS Safety Report 25703430 (Version 1)
Quarter: 2025Q3

REPORT INFORMATION
  Report Type: Spontaneous
  Country: US (occurrence: US)
  Receive Date: 20250820
  Receipt Date: 20250820
  Transmission Date: 20251020
  Serious: No
  Sender: TARO
  Company Number: US-TARO PHARMACEUTICALS USA INC.-2024TAR00475

PATIENT

DRUGS (1)
  1. DAPSONE [Suspect]
     Active Substance: DAPSONE
     Indication: Product used for unknown indication
     Dosage: UNK, THE DOSE WAS TO APPLY TO THE AFFECTED AREA ONE TIME DAILY.
     Route: 061
     Dates: start: 20240403

REACTIONS (2)
  - Product dose omission issue [Unknown]
  - Product container issue [Unknown]
